FAERS Safety Report 6132249-4 (Version None)
Quarter: 2009Q1

REPORT INFORMATION
  Report Type: 
  Country: None (occurrence: None)
  Receive Date: 20090325
  Receipt Date: 20090313
  Transmission Date: 20090719
  Serious: Yes (Hospitalization)
  Sender: FDA-Public Use
  Company Number: US-PFIZER INC-2009182743

PATIENT
  Sex: Male
  Weight: 72.562 kg

DRUGS (22)
  1. NAPROXEN [Suspect]
     Indication: OSTEOARTHRITIS
     Dosage: UNK
     Route: 048
     Dates: start: 20070803
  2. BLINDED *PLACEBO [Suspect]
     Indication: OSTEOARTHRITIS
     Dosage: UNK
     Route: 048
     Dates: start: 20070803
  3. BLINDED CELECOXIB [Suspect]
     Indication: OSTEOARTHRITIS
     Dosage: UNK
     Route: 048
     Dates: start: 20070803
  4. IBUPROFEN TABLETS [Suspect]
     Indication: OSTEOARTHRITIS
     Dosage: UNK
     Route: 048
     Dates: start: 20070803
  5. NAPROXEN [Suspect]
     Dosage: UNK
     Route: 048
     Dates: start: 20070803
  6. MICARDIS HCT [Concomitant]
     Dosage: UNK
     Route: 048
     Dates: start: 20050101
  7. TAMSULOSIN [Concomitant]
     Dosage: UNK
     Route: 048
     Dates: start: 20030101
  8. VIAGRA [Concomitant]
     Indication: ERECTILE DYSFUNCTION
     Dosage: UNK
     Route: 048
     Dates: start: 20030101
  9. ADVAIR HFA [Concomitant]
     Dosage: UNK
     Route: 045
     Dates: start: 20070101
  10. SPIRIVA [Concomitant]
     Dosage: UNK
     Route: 045
     Dates: start: 20070101
  11. ZYRTEC [Concomitant]
     Dosage: UNK
     Route: 048
     Dates: start: 20070101
  12. VITAMIN E [Concomitant]
     Dosage: UNK
     Route: 048
     Dates: start: 19970101
  13. VITAMIN D [Concomitant]
     Dosage: UNK
     Route: 048
     Dates: start: 19970101
  14. MULTI-VITAMINS [Concomitant]
     Dosage: UNK
     Route: 048
     Dates: start: 19970101
  15. POTASSIUM [Concomitant]
     Dosage: UNK
     Route: 048
     Dates: start: 19970101
  16. VITAMIN B-12 [Concomitant]
     Dosage: UNK
     Route: 051
     Dates: start: 20050101
  17. CALCIUM MAGNESIUM ZINC [Concomitant]
     Dosage: UNK
     Route: 048
     Dates: start: 19920101
  18. SELENIUM SULFIDE [Concomitant]
     Dosage: UNK
     Route: 048
     Dates: start: 20020101
  19. FISH OIL [Concomitant]
     Dosage: UNK
     Route: 048
     Dates: start: 20020101
  20. VITAMIN B6 [Concomitant]
     Dosage: UNK
     Route: 048
     Dates: start: 20050101
  21. COENZYME Q10 [Concomitant]
     Dosage: UNK
     Route: 048
     Dates: start: 20050101
  22. JUICE PLUS ^GARDEN BLEND^ [Concomitant]

REACTIONS (1)
  - OSTEOARTHRITIS [None]
